FAERS Safety Report 21177755 (Version 5)
Quarter: 2022Q4

REPORT INFORMATION
  Report Type: Spontaneous
  Country: US (occurrence: US)
  Receive Date: 20220805
  Receipt Date: 20221201
  Transmission Date: 20230112
  Serious: Yes (Other)
  Sender: FDA-Public Use
  Company Number: US-PFIZER INC-PV202200037115

PATIENT
  Age: 58 Year
  Sex: Female

DRUGS (1)
  1. IBRANCE [Suspect]
     Active Substance: PALBOCICLIB
     Indication: Breast cancer female
     Dosage: 125 MG, CYCLIC (ONCE A DAY FOR 21 DAYS, OFF 7 DAYS. REPEAT EVERY 28 DAYS)
     Route: 048
     Dates: start: 20200526

REACTIONS (6)
  - Haemorrhage [Unknown]
  - Somnolence [Not Recovered/Not Resolved]
  - Alopecia [Not Recovered/Not Resolved]
  - Contusion [Unknown]
  - Dry skin [Unknown]
  - Fatigue [Not Recovered/Not Resolved]
